FAERS Safety Report 15917265 (Version 2)
Quarter: 2019Q2

REPORT INFORMATION
  Report Type: Spontaneous
  Country: CN (occurrence: CN)
  Receive Date: 20190205
  Receipt Date: 20190402
  Transmission Date: 20190711
  Serious: Yes (Other)
  Sender: FDA-Public Use
  Company Number: CN-SA-2019SA028126

PATIENT
  Age: 77 Year
  Sex: Female
  Weight: 60 kg

DRUGS (7)
  1. CLOPIDOGREL BISULFATE. [Suspect]
     Active Substance: CLOPIDOGREL BISULFATE
     Indication: PLATELET AGGREGATION INHIBITION
     Dosage: 75 MG, QD
     Route: 045
     Dates: start: 20190110, end: 20190115
  2. SALVIANOLATE [Concomitant]
     Active Substance: HERBALS
     Dosage: 200 MG, QD
     Route: 041
  3. ASPIRIN BAYER [Suspect]
     Active Substance: ASPIRIN
     Dosage: 100 MG, QD
     Route: 048
     Dates: start: 20190113, end: 20190115
  4. GLUCOSE INJECTION [Concomitant]
     Active Substance: DEXTROSE
     Indication: VEHICLE SOLUTION USE
     Dosage: 250 ML, QD
     Route: 041
     Dates: start: 20190110, end: 20190115
  5. ENOXAPARIN SODIUM. [Suspect]
     Active Substance: ENOXAPARIN SODIUM
     Indication: PLATELET AGGREGATION INHIBITION
     Dosage: 4000 IU, Q12H
     Route: 058
     Dates: start: 20190110, end: 20190115
  6. ASPIRIN BAYER [Suspect]
     Active Substance: ASPIRIN
     Indication: ANTICOAGULANT THERAPY
     Dosage: 100 MG, QD
     Route: 045
     Dates: start: 20190110
  7. ASPIRIN BAYER [Suspect]
     Active Substance: ASPIRIN
     Dosage: 300 MG, QD
     Route: 045

REACTIONS (6)
  - Mouth haemorrhage [Recovering/Resolving]
  - Contusion [Recovering/Resolving]
  - Coagulopathy [Recovering/Resolving]
  - Petechiae [Recovering/Resolving]
  - Epistaxis [Recovering/Resolving]
  - Upper gastrointestinal haemorrhage [Recovering/Resolving]

NARRATIVE: CASE EVENT DATE: 20190114
